FAERS Safety Report 7599651-5 (Version None)
Quarter: 2011Q2

REPORT INFORMATION
  Report Type: 
  Country: None (occurrence: None)
  Receive Date: 20110629
  Receipt Date: 20110617
  Transmission Date: 20111010
  Serious: Yes (Life-Threatening, Hospitalization)
  Sender: FDA-Public Use
  Company Number: 1000019332

PATIENT
  Age: 44 Year
  Sex: Male
  Weight: 104.3 kg

DRUGS (3)
  1. ESCITALOPRAM [Suspect]
     Indication: DEPRESSION
     Dosage: 5 MG (5 MG,1 IN 1 D),ORAL
     Route: 048
     Dates: start: 20100706, end: 20100709
  2. NOVO-VENLAFAXINE XR (VENLAFAXINE) (CAPSULES) (VENLAFAXINE) [Concomitant]
  3. TEVA-VENLAFAXINE XR (VENLAFAXINE) (CAPSULES) (VENLAFAXINE) [Concomitant]

REACTIONS (2)
  - SUICIDE ATTEMPT [None]
  - TRANCE [None]
